FAERS Safety Report 25652426 (Version 1)
Quarter: 2025Q3

REPORT INFORMATION
  Report Type: Spontaneous
  Country: EU (occurrence: EU)
  Receive Date: 20250807
  Receipt Date: 20250807
  Transmission Date: 20251020
  Serious: Yes (Hospitalization, Disabling, Other)
  Sender: NOVO NORDISK
  Company Number: None

PATIENT
  Age: 47 Year
  Sex: Female
  Weight: 71 kg

DRUGS (7)
  1. LEVOTHYROXINE SODIUM [Concomitant]
     Active Substance: LEVOTHYROXINE SODIUM
     Indication: Hypothyroidism
  2. LEVOTHYROXINE SODIUM [Concomitant]
     Active Substance: LEVOTHYROXINE SODIUM
  3. CIPRALEX [Concomitant]
     Active Substance: ESCITALOPRAM OXALATE
     Indication: Depression
  4. VALPROIC ACID [Concomitant]
     Active Substance: VALPROIC ACID
     Indication: Bipolar disorder
  5. QUETIAPINE [Concomitant]
     Active Substance: QUETIAPINE
  6. QUETIAPINE [Concomitant]
     Active Substance: QUETIAPINE
     Indication: Bipolar disorder
     Dates: start: 202312
  7. WEGOVY [Suspect]
     Active Substance: SEMAGLUTIDE
     Indication: Overweight
     Route: 058
     Dates: start: 202302, end: 202310

REACTIONS (8)
  - Pancreatitis [Recovering/Resolving]
  - Gallbladder disorder [Recovering/Resolving]
  - Proctitis ulcerative [Recovering/Resolving]
  - Haematochezia [Unknown]
  - Alopecia [Recovering/Resolving]
  - Constipation [Unknown]
  - Vomiting [Recovered/Resolved]
  - Fatigue [Recovered/Resolved]
